FAERS Safety Report 21967415 (Version 1)
Quarter: 2023Q1

REPORT INFORMATION
  Report Type: Spontaneous
  Country: US (occurrence: None)
  Receive Date: 20230207
  Receipt Date: 20230207
  Transmission Date: 20230418
  Serious: Yes (Hospitalization)
  Sender: FDA-Public Use
  Company Number: None

PATIENT
  Sex: Female

DRUGS (4)
  1. COLISTIMETHATE SODIUM [Suspect]
     Active Substance: COLISTIMETHATE SODIUM
     Indication: Cystic fibrosis
     Dosage: FREQUENCY : AS DIRECTED;?INHALE 150MG INTO THE LUNGS EVERY 12 HOURS. USE FOR 28 DAYS ON, 28 DAYS OFF
     Route: 055
     Dates: start: 20170913
  2. COLISTIMETHATE SODIUM [Suspect]
     Active Substance: COLISTIMETHATE SODIUM
     Dosage: FREQUENCY : AS DIRECTED;?
     Route: 055
  3. CIPROFLOXACIN [Concomitant]
     Active Substance: CIPROFLOXACIN
  4. PULMICORT SUS [Concomitant]

REACTIONS (5)
  - Dyspnoea [None]
  - Exercise tolerance decreased [None]
  - Productive cough [None]
  - Wheezing [None]
  - Therapy interrupted [None]
